FAERS Safety Report 7299340-0 (Version None)
Quarter: 2011Q1

REPORT INFORMATION
  Report Type: 
  Country: None (occurrence: None)
  Receive Date: 20110217
  Receipt Date: 20110214
  Transmission Date: 20110831
  Serious: Yes (Death, Hospitalization, Congenital Anomaly)
  Sender: FDA-Public Use
  Company Number: A0882071A

PATIENT
  Sex: Male

DRUGS (4)
  1. PAXIL [Suspect]
     Indication: DEPRESSION
     Route: 064
     Dates: start: 20000616
  2. AMBIEN [Concomitant]
     Route: 064
     Dates: start: 20000823, end: 20000911
  3. PHENERGAN [Concomitant]
     Route: 064
     Dates: start: 20001012
  4. VITAMIN AND MINERAL PRENATAL SUPPLEMENT W/ FOLIC ACID CAP [Concomitant]
     Route: 064

REACTIONS (4)
  - RESPIRATORY FAILURE [None]
  - FALLOT'S TETRALOGY [None]
  - DOUBLE OUTLET RIGHT VENTRICLE [None]
  - DRUG EXPOSURE DURING PREGNANCY [None]
